FAERS Safety Report 5646765-2 (Version None)
Quarter: 2008Q1

REPORT INFORMATION
  Report Type: 
  Country: None (occurrence: None)
  Receive Date: 20080303
  Receipt Date: 20080221
  Transmission Date: 20080703
  Serious: Yes (Other)
  Sender: FDA-Public Use
  Company Number: BR-ROCHE-549312

PATIENT
  Age: 35 Year
  Sex: Female

DRUGS (2)
  1. ROACUTAN [Suspect]
     Dosage: PATIENT HAD TOTAL OF 7 CAPSULES
     Route: 048
     Dates: start: 20080115, end: 20080201
  2. UNSPECIFIED MEDICATION [Concomitant]
     Route: 061

REACTIONS (2)
  - NO ADVERSE EVENT [None]
  - PREGNANCY [None]
